FAERS Safety Report 9835305 (Version 1)
Quarter: 2014Q1

REPORT INFORMATION
  Report Type: Spontaneous
  Country: US (occurrence: US)
  Receive Date: 20140122
  Receipt Date: 20140122
  Transmission Date: 20141002
  Serious: No
  Sender: FDA-Public Use
  Company Number: US-BRISTOL-MYERS SQUIBB COMPANY-19926930

PATIENT
  Age: 79 Year
  Sex: Female
  Weight: 76.19 kg

DRUGS (5)
  1. ELIQUIS [Suspect]
     Indication: ATRIAL FIBRILLATION
     Dates: start: 201303
  2. SYMBICORT [Concomitant]
  3. SYNTHROID [Concomitant]
  4. DIGOXIN [Concomitant]
  5. METOPROLOL [Concomitant]

REACTIONS (3)
  - Pain in extremity [Unknown]
  - Gait disturbance [Unknown]
  - Arthralgia [Unknown]
